FAERS Safety Report 7233112-8 (Version None)
Quarter: 2011Q1

REPORT INFORMATION
  Report Type: 
  Country: None (occurrence: None)
  Receive Date: 20110106
  Receipt Date: 20101129
  Transmission Date: 20110831
  Serious: No
  Sender: FDA-Public Use
  Company Number: 2010-01031

PATIENT
  Age: 87 Year
  Sex: Female
  Weight: 59.8748 kg

DRUGS (14)
  1. OMEPRAZOLE [Concomitant]
  2. FISH OIL [Concomitant]
  3. METOPROLOL [Concomitant]
  4. CELEBREX [Concomitant]
  5. OCULAR FORMULA [Concomitant]
  6. TUMS [Concomitant]
  7. FOSAMAX [Concomitant]
  8. ZICAM COLD REMEDY RAPIDMELTS WITH VITAMIN C [Suspect]
     Dosage: Q3 HOURS X 3 DAYS;
     Dates: start: 20101121, end: 20101124
  9. GLUCOSAMINE [Concomitant]
  10. LISINOPRIL [Concomitant]
  11. PRAVASTATIN [Concomitant]
  12. MAGNESIUM [Concomitant]
  13. VITAMIN D [Concomitant]
  14. WARFARIN [Concomitant]

REACTIONS (1)
  - AGEUSIA [None]
